FAERS Safety Report 9366816 (Version 1)
Quarter: 2013Q2

REPORT INFORMATION
  Report Type: Spontaneous
  Country: GB (occurrence: None)
  Receive Date: 20130620
  Receipt Date: 20130620
  Transmission Date: 20140414
  Serious: Yes (Hospitalization)
  Sender: FDA-Public Use
  Company Number: DKLU1091598

PATIENT
  Age: 5 Year
  Sex: Male

DRUGS (7)
  1. COSMEGEN [Suspect]
     Indication: NEOPLASM MALIGNANT
     Dosage: INTRAVENOUS (NOT OTHERWISE SPECIFIED)
     Route: 042
     Dates: start: 20120720
  2. VINCRISTINE (VINCRISTINE) (UNKNOWN) [Suspect]
     Indication: NEOPLASM MALIGNANT
     Dosage: INTRAVENOUS (NOT OTHERWISE SPECIFIED)
     Route: 042
  3. IFOSFAMIDE (IFOSFAMIDE) [Suspect]
     Indication: NEOPLASM MALIGNANT
     Dosage: INTRAVENOUS (NOT OTHERWISE SPECIFIED)
     Route: 042
     Dates: start: 20120720
  4. ONDANSETRON (ONDANSETRON) [Concomitant]
  5. METOCLOPRAMIDE (METOCLOPRAMIDE) [Concomitant]
  6. SEPTRIN (BACTRIM) [Concomitant]
  7. PARACETAMOL (PARACETAMOL) [Concomitant]

REACTIONS (2)
  - Vomiting [None]
  - Haematuria [None]
